FAERS Safety Report 5289285-X (Version None)
Quarter: 2007Q2

REPORT INFORMATION
  Report Type: 
  Country: None (occurrence: None)
  Receive Date: 20070406
  Receipt Date: 20070322
  Transmission Date: 20071010
  Serious: Yes (Hospitalization, Other)
  Sender: FDA-Public Use
  Company Number: FR-JNJFOC-20070106273

PATIENT
  Age: 48 Year
  Sex: Female
  Weight: 65 kg

DRUGS (9)
  1. REMICADE [Suspect]
     Route: 042
  2. REMICADE [Suspect]
     Dosage: THIRTEENTH DOSE
     Route: 042
  3. REMICADE [Suspect]
     Indication: RHEUMATOID ARTHRITIS
     Dosage: RECEIVED TWELEVE DOSES (DATES, DOSES AND FREQUENCY NOT PROVIDED)
     Route: 042
  4. METHOTREXATE [Concomitant]
     Indication: RHEUMATOID ARTHRITIS
  5. CORTICOSTEROIDS [Concomitant]
     Indication: RHEUMATOID ARTHRITIS
  6. CORTANCYL [Concomitant]
  7. SPECIAFOLDINE [Concomitant]
  8. ACTONEL [Concomitant]
  9. CALCIDOSE [Concomitant]

REACTIONS (1)
  - PULMONARY HYPERTENSION [None]
